FAERS Safety Report 12957109 (Version 1)
Quarter: 2016Q4

REPORT INFORMATION
  Report Type: Report from Study
  Country: RU (occurrence: RU)
  Receive Date: 20161118
  Receipt Date: 20161118
  Transmission Date: 20170207
  Serious: Yes (Hospitalization, Disabling)
  Sender: FDA-Public Use
  Company Number: RU-UCBSA-2016042944

PATIENT
  Age: 63 Year
  Sex: Female
  Weight: 86 kg

DRUGS (3)
  1. CERTOLIZUMAB PEGOL [Suspect]
     Active Substance: CERTOLIZUMAB PEGOL
     Indication: RHEUMATOID ARTHRITIS
     Dosage: 200 MG, EV 2 WEEKS(QOW)
     Route: 058
     Dates: start: 20160420, end: 20161026
  2. BLINDED BIMEKIZUMAB [Suspect]
     Active Substance: BIMEKIZUMAB
     Indication: RHEUMATOID ARTHRITIS
     Dosage: N/A
  3. BLINDED PLACEBO [Suspect]
     Active Substance: INVESTIGATIONAL PRODUCT
     Indication: RHEUMATOID ARTHRITIS
     Dosage: N/A

REACTIONS (1)
  - Bursitis infective [Recovering/Resolving]

NARRATIVE: CASE EVENT DATE: 20161026
